FAERS Safety Report 4705737-2 (Version None)
Quarter: 2005Q2

REPORT INFORMATION
  Report Type: 
  Country: None (occurrence: None)
  Receive Date: 20050629
  Receipt Date: 20050623
  Transmission Date: 20051028
  Serious: Yes (Hospitalization)
  Sender: FDA-Public Use
  Company Number: A044-002-005658

PATIENT
  Age: 64 Year
  Sex: Male

DRUGS (1)
  1. ARICEPT [Suspect]
     Dosage: 5 MG, 1 IN 1 D, ORAL
     Route: 048
     Dates: end: 20050101

REACTIONS (6)
  - ATRIOVENTRICULAR BLOCK SECOND DEGREE [None]
  - CARDIAC DISORDER [None]
  - CARDIAC PROCEDURE COMPLICATION [None]
  - CORONARY ARTERY SURGERY [None]
  - MITRAL VALVE REPAIR [None]
  - TRICUSPID VALVE REPAIR [None]
